FAERS Safety Report 15339703 (Version 2)
Quarter: 2018Q3

REPORT INFORMATION
  Report Type: Report from Study
  Country: AR (occurrence: AR)
  Receive Date: 20180831
  Receipt Date: 20180914
  Transmission Date: 20181010
  Serious: Yes (Hospitalization)
  Sender: FDA-Public Use
  Company Number: PHHY2018AR083813

PATIENT
  Sex: Male

DRUGS (1)
  1. OMNITROPE [Suspect]
     Active Substance: SOMATROPIN
     Indication: FOETAL GROWTH RESTRICTION
     Dosage: UNK
     Route: 065
     Dates: start: 2015

REACTIONS (7)
  - Weight increased [Unknown]
  - Eye infection viral [Recovering/Resolving]
  - Swelling face [Recovering/Resolving]
  - Eye injury [Unknown]
  - Vision blurred [Recovering/Resolving]
  - Hepatic steatosis [Recovering/Resolving]
  - Increased appetite [Recovering/Resolving]
